FAERS Safety Report 15991900 (Version 3)
Quarter: 2019Q2

REPORT INFORMATION
  Report Type: Spontaneous
  Country: US (occurrence: US)
  Receive Date: 20190221
  Receipt Date: 20190520
  Transmission Date: 20190711
  Serious: No
  Sender: FDA-Public Use
  Company Number: US-PFIZER INC-2019066382

PATIENT
  Age: 38 Year
  Sex: Female

DRUGS (1)
  1. XELJANZ XR [Suspect]
     Active Substance: TOFACITINIB CITRATE
     Indication: ARTHRITIS
     Dosage: 11 MG, UNK
     Dates: start: 20190416

REACTIONS (7)
  - Rash [Unknown]
  - Product dose omission [Unknown]
  - Influenza [Unknown]
  - Nasopharyngitis [Unknown]
  - Pain [Unknown]
  - Musculoskeletal pain [Unknown]
  - Headache [Unknown]
